FAERS Safety Report 4489351-2 (Version None)
Quarter: 2004Q4

REPORT INFORMATION
  Report Type: 
  Country: None (occurrence: None)
  Receive Date: 20041026
  Receipt Date: 20041013
  Transmission Date: 20050328
  Serious: Yes (Hospitalization)
  Sender: FDA-Public Use
  Company Number: RENA-11192

PATIENT
  Age: 74 Year
  Sex: Female

DRUGS (10)
  1. RENAGEL [Suspect]
     Indication: HYPERPHOSPHATAEMIA
     Dosage: 3 TAB DAILY PO
     Route: 048
     Dates: start: 20010101, end: 20040909
  2. IRBESARTAN [Concomitant]
  3. DUPHALAC [Concomitant]
  4. CLAMOXYL [Concomitant]
  5. NOVONORM [Concomitant]
  6. LASILIX [Concomitant]
  7. UN ALPHA [Concomitant]
  8. VANCOMYCIN [Concomitant]
  9. ALLOPURINOL [Concomitant]
  10. CHLORAMINOPHEN [Concomitant]

REACTIONS (3)
  - PERITONITIS BACTERIAL [None]
  - PRURITUS [None]
  - RASH ERYTHEMATOUS [None]
